FAERS Safety Report 10747220 (Version 1)
Quarter: 2015Q1

REPORT INFORMATION
  Report Type: Report from Study
  Country: US (occurrence: US)
  Receive Date: 20150129
  Receipt Date: 20150129
  Transmission Date: 20150721
  Serious: Yes (Other)
  Sender: FDA-Public Use
  Company Number: US-AMGEN-USASL2015007443

PATIENT
  Age: 37 Year
  Sex: Male

DRUGS (1)
  1. ENBREL [Suspect]
     Active Substance: ETANERCEPT
     Indication: ANKYLOSING SPONDYLITIS
     Dosage: 50 MG, EVERY SEVEN DAYS
     Route: 058
     Dates: start: 201303, end: 201412

REACTIONS (3)
  - Anorectal cellulitis [Recovered/Resolved]
  - Renal impairment [Unknown]
  - Rectal abscess [Recovered/Resolved]

NARRATIVE: CASE EVENT DATE: 201412
